FAERS Safety Report 8417070-6 (Version None)
Quarter: 2012Q2

REPORT INFORMATION
  Report Type: 
  Country: None (occurrence: None)
  Receive Date: 20120606
  Receipt Date: 20120529
  Transmission Date: 20120825
  Serious: Yes (Hospitalization, Other)
  Sender: FDA-Public Use
  Company Number: DE-ELI_LILLY_AND_COMPANY-DE201205009894

PATIENT
  Age: 84 Year
  Sex: Male

DRUGS (7)
  1. SIMVASTATIN [Concomitant]
  2. RAMIPRIL [Concomitant]
     Dosage: 25 MG, UNK
  3. FORTEO [Suspect]
     Indication: OSTEOPOROSIS
     Dosage: UNK, QD
     Route: 058
     Dates: start: 20101208
  4. TORSEMIDE [Concomitant]
  5. ASPIRIN [Concomitant]
  6. NEBIVOLOL HCL [Concomitant]
  7. NIASPAN [Concomitant]

REACTIONS (8)
  - DIZZINESS [None]
  - DYSPNOEA [None]
  - BODY TEMPERATURE INCREASED [None]
  - PULMONARY OEDEMA [None]
  - IMPLANTABLE DEFIBRILLATOR INSERTION [None]
  - FALL [None]
  - HEART RATE DECREASED [None]
  - HYPOTENSION [None]
